FAERS Safety Report 8094843-3 (Version None)
Quarter: 2011Q4

REPORT INFORMATION
  Report Type: 
  Country: None (occurrence: None)
  Receive Date: 20111222
  Receipt Date: 20111027
  Transmission Date: 20120403
  Serious: Yes (Hospitalization)
  Sender: FDA-Public Use
  Company Number: UTC-011710

PATIENT
  Age: 51 Year
  Sex: Male

DRUGS (3)
  1. TYVASO [Suspect]
     Indication: PULMONARY ARTERIAL HYPERTENSION
     Dosage: 216 MCG (54 MCG, 4 IN 1 D), INHALATION
     Route: 055
     Dates: start: 20091228
  2. COUMADIN [Concomitant]
  3. DIURETICS (DIURETICS) [Concomitant]

REACTIONS (8)
  - SYNCOPE [None]
  - FLUID RETENTION [None]
  - ABDOMINAL DISCOMFORT [None]
  - FEELING ABNORMAL [None]
  - HEADACHE [None]
  - DRY THROAT [None]
  - DYSPNOEA [None]
  - DRY MOUTH [None]
